FAERS Safety Report 20742357 (Version 1)
Quarter: 2022Q2

REPORT INFORMATION
  Report Type: Spontaneous
  Country: US (occurrence: US)
  Receive Date: 20220424
  Receipt Date: 20220424
  Transmission Date: 20220721
  Serious: Yes (Other)
  Sender: FDA-Public Use
  Company Number: US-TEVA-2022-US-2028649

PATIENT
  Age: 73 Year
  Sex: Female

DRUGS (4)
  1. LORAZEPAM [Suspect]
     Active Substance: LORAZEPAM
     Indication: Panic disorder
     Dosage: .5 MILLIGRAM DAILY; ONE 0.5 MG TABLET TO BE TAKEN AT NIGHT
     Route: 065
  2. LORAZEPAM [Suspect]
     Active Substance: LORAZEPAM
     Indication: Anxiety disorder
  3. LORAZEPAM [Suspect]
     Active Substance: LORAZEPAM
     Indication: Panic disorder
     Dosage: ONE 0.5 MG TABLET TO BE TAKEN AT NIGHT
     Route: 065
  4. LORAZEPAM [Suspect]
     Active Substance: LORAZEPAM
     Indication: Anxiety disorder

REACTIONS (5)
  - Syncope [Unknown]
  - Fear [Not Recovered/Not Resolved]
  - Somnolence [Unknown]
  - Drug hypersensitivity [Not Recovered/Not Resolved]
  - Intercepted product prescribing error [Unknown]

NARRATIVE: CASE EVENT DATE: 20220301
